FAERS Safety Report 16814177 (Version 1)
Quarter: 2019Q3

REPORT INFORMATION
  Report Type: Spontaneous
  Country: US (occurrence: US)
  Receive Date: 20190917
  Receipt Date: 20190917
  Transmission Date: 20191005
  Serious: No
  Sender: FDA-Public Use
  Company Number: US-ALLERGAN-1851619US

PATIENT
  Sex: Female

DRUGS (6)
  1. CARAFATE [Suspect]
     Active Substance: SUCRALFATE
     Indication: GASTROINTESTINAL DISORDER
     Dosage: UNK, BID
     Route: 048
     Dates: start: 20181107, end: 20181107
  2. TOPRAZOLE [Concomitant]
     Indication: GASTROINTESTINAL DISORDER
     Dosage: 30 MIN BEFORE BREAKFAST
     Route: 005
  3. FDGARD [Concomitant]
     Indication: PRODUCT USED FOR UNKNOWN INDICATION
     Dosage: UNK
     Route: 065
  4. PREVACID [Concomitant]
     Active Substance: LANSOPRAZOLE
     Indication: GASTROINTESTINAL DISORDER
     Dosage: UNK
     Route: 065
  5. CARAFATE [Suspect]
     Active Substance: SUCRALFATE
     Dosage: UNK, BID
     Route: 048
     Dates: start: 201808, end: 201810
  6. FDGARD [Concomitant]
     Dosage: UNK

REACTIONS (5)
  - Product physical issue [Unknown]
  - Inappropriate schedule of product administration [Unknown]
  - Abdominal pain upper [Not Recovered/Not Resolved]
  - Taste disorder [Not Recovered/Not Resolved]
  - Vomiting [Not Recovered/Not Resolved]

NARRATIVE: CASE EVENT DATE: 20181107
